FAERS Safety Report 18511543 (Version 1)
Quarter: 2020Q4

REPORT INFORMATION
  Report Type: Spontaneous
  Country: CN (occurrence: CN)
  Receive Date: 20201117
  Receipt Date: 20201117
  Transmission Date: 20210114
  Serious: Yes (Other)
  Sender: FDA-Public Use
  Company Number: CN-009507513-2011CHN008608

PATIENT
  Age: 57 Year
  Sex: Female
  Weight: 53.9 kg

DRUGS (10)
  1. KEYTRUDA [Suspect]
     Active Substance: PEMBROLIZUMAB
     Indication: RECTAL CANCER
     Dosage: 100 MILLIGRAM, ONCE
     Route: 041
     Dates: start: 20201106, end: 20201106
  2. ELOXATIN [Suspect]
     Active Substance: OXALIPLATIN
     Indication: RECTAL CANCER
     Dosage: 135 MILLIGRAM, ONCE
     Route: 041
     Dates: start: 20201106, end: 20201106
  3. SODIUM CHLORIDE. [Concomitant]
     Active Substance: SODIUM CHLORIDE
     Dosage: 290 MILLILITER, ONCE; VIA PUMP INJECTION; AS SOLVENT; ALSO REPORTED AS 46 HOURS CONTINUOUS INTRAVENO
     Dates: start: 20201106, end: 20201106
  4. DEXTROSE. [Concomitant]
     Active Substance: DEXTROSE
     Dosage: 250 MILLILITER, ONCE; AS SOLVENT
     Route: 041
     Dates: start: 20201106, end: 20201106
  5. FLUOROURACIL. [Suspect]
     Active Substance: FLUOROURACIL
     Indication: RECTAL CANCER
     Dosage: 0.65 GRAM, ONCE
     Route: 041
     Dates: start: 20201106, end: 20201106
  6. SODIUM CHLORIDE. [Concomitant]
     Active Substance: SODIUM CHLORIDE
     Dosage: 100 MILLILITER
     Route: 041
     Dates: start: 20201106, end: 20201106
  7. LEUCOVORIN. [Suspect]
     Active Substance: LEUCOVORIN
     Indication: RECTAL CANCER
     Dosage: 650 MILLIGRAM, ONCE
     Route: 041
     Dates: start: 20201106, end: 20201106
  8. FLUOROURACIL. [Suspect]
     Active Substance: FLUOROURACIL
     Dosage: 3.88 GRAM, ONCE; VIA PUMP INJECTION; ALSO REPORTED AS 46 HOURS CONTINUOUS INTRAVENOUS INFUSION
     Dates: start: 20201106, end: 20201106
  9. SODIUM CHLORIDE. [Concomitant]
     Active Substance: SODIUM CHLORIDE
     Dosage: 100 MILLILITER, ONCE; AS SOLVENT
     Route: 041
     Dates: start: 20201106, end: 20201106
  10. DEXTROSE. [Concomitant]
     Active Substance: DEXTROSE
     Dosage: 250 MILLILITER, ONCE; AS SOLVENT
     Route: 041
     Dates: start: 20201106, end: 20201106

REACTIONS (5)
  - Incorrect dose administered [Unknown]
  - Pyrexia [Unknown]
  - Myelosuppression [Unknown]
  - Infection [Unknown]
  - Product use in unapproved indication [Unknown]

NARRATIVE: CASE EVENT DATE: 20201106
